FAERS Safety Report 17690884 (Version 9)
Quarter: 2021Q4

REPORT INFORMATION
  Report Type: Report from Study
  Country: BE (occurrence: BE)
  Receive Date: 20200422
  Receipt Date: 20211208
  Transmission Date: 20220303
  Serious: Yes (Hospitalization)
  Sender: FDA-Public Use
  Company Number: BE-ABBVIE-20K-013-3373020-00

PATIENT
  Age: 74 Year
  Sex: Female

DRUGS (11)
  1. CARBIDOPA\LEVODOPA [Suspect]
     Active Substance: CARBIDOPA\LEVODOPA
     Indication: Parkinson^s disease
     Dosage: MD=3.5ML, CD=1.6ML/HR DURING 16HRS, ED=1ML
     Route: 050
     Dates: start: 20101004, end: 20101008
  2. CARBIDOPA\LEVODOPA [Suspect]
     Active Substance: CARBIDOPA\LEVODOPA
     Dosage: DOSES CONTINUOUSLY MONITORED AND ADAPTED
     Route: 050
     Dates: start: 20101008, end: 20190913
  3. CARBIDOPA\LEVODOPA [Suspect]
     Active Substance: CARBIDOPA\LEVODOPA
     Dosage: MD=3ML, CD=1.7ML/HR DURING 16HRS, ED=1ML, ND=1.7ML/HR DURING 8HRS
     Route: 050
     Dates: start: 20190913, end: 20200209
  4. CARBIDOPA\LEVODOPA [Suspect]
     Active Substance: CARBIDOPA\LEVODOPA
     Dosage: MD=3ML, CD=1.6ML/HR DURING 16HRS, ED=1ML, ND=1.7ML/HR DURING?8HRS
     Route: 050
     Dates: start: 20200209, end: 20200420
  5. CARBIDOPA\LEVODOPA [Suspect]
     Active Substance: CARBIDOPA\LEVODOPA
     Dosage: MD=3ML, CD=1.7ML/HR DURING 16HRS, ED=1ML, ND=1.7ML/HR DURING?8HRS
     Route: 050
     Dates: start: 20200420, end: 20200421
  6. CARBIDOPA\LEVODOPA [Suspect]
     Active Substance: CARBIDOPA\LEVODOPA
     Dosage: MD=0ML, CD=1.7ML/HR DURING 16HRS, ED=1ML
     Route: 050
     Dates: start: 20200421, end: 20210331
  7. CARBIDOPA\LEVODOPA [Suspect]
     Active Substance: CARBIDOPA\LEVODOPA
     Dosage: MD= 0.0 ML, CD= 1.9 ML/HR DURING 16HRS, ED= 1.0ML
     Route: 050
     Dates: start: 20210331, end: 20211206
  8. CARBIDOPA\LEVODOPA [Suspect]
     Active Substance: CARBIDOPA\LEVODOPA
     Dosage: MD 3.0 ML, CD= 1.8 ML/HR DURING 16HRS, CND 1.8 ML/H, ED= 1.0 ML
     Route: 050
     Dates: start: 20211206
  9. BENSERAZIDE\LEVODOPA [Concomitant]
     Active Substance: BENSERAZIDE\LEVODOPA
     Indication: Product used for unknown indication
  10. LEVODOPA/BENSERAZIDE (PROLOPA 125) [Concomitant]
     Indication: Product used for unknown indication
     Dosage: FORM STRENGTH: 100MG/25MG
  11. BENSERAZIDE\LEVODOPA [Concomitant]
     Active Substance: BENSERAZIDE\LEVODOPA
     Indication: Parkinson^s disease
     Route: 048

REACTIONS (10)
  - Fall [Recovered/Resolved]
  - Mobility decreased [Unknown]
  - Overdose [Unknown]
  - Dyskinesia [Recovered/Resolved]
  - Freezing phenomenon [Unknown]
  - Anxiety [Not Recovered/Not Resolved]
  - Dyskinesia [Unknown]
  - Bradykinesia [Unknown]
  - Hyperthyroidism [Unknown]
  - Thyroid mass [Not Recovered/Not Resolved]

NARRATIVE: CASE EVENT DATE: 20200401
